FAERS Safety Report 7232575-1 (Version None)
Quarter: 2011Q1

REPORT INFORMATION
  Report Type: 
  Country: None (occurrence: None)
  Receive Date: 20110112
  Receipt Date: 20110112
  Transmission Date: 20110831
  Serious: Yes (Other)
  Sender: FDA-Public Use
  Company Number: None

PATIENT
  Age: 15 Year
  Sex: Male
  Weight: 65.7716 kg

DRUGS (1)
  1. PREDNISONE [Suspect]
     Indication: COLITIS
     Dosage: 12.5MG DAILY OTHER
     Route: 050
     Dates: start: 20101001

REACTIONS (5)
  - DIZZINESS [None]
  - FATIGUE [None]
  - ASTHENIA [None]
  - HEART RATE INCREASED [None]
  - DYSPNOEA [None]
